FAERS Safety Report 5993620-4 (Version None)
Quarter: 2008Q4

REPORT INFORMATION
  Report Type: 
  Country: None (occurrence: None)
  Receive Date: 20081212
  Receipt Date: 20081208
  Transmission Date: 20090506
  Serious: Yes (Life-Threatening, Hospitalization, Other)
  Sender: FDA-Public Use
  Company Number: PHHY2008BR28673

PATIENT
  Sex: Female

DRUGS (9)
  1. FORASEQ [Suspect]
     Indication: LUNG DISORDER
     Dosage: 2 INHALATIONS PER DAY
     Dates: start: 20060101
  2. FORASEQ [Suspect]
     Indication: DYSPNOEA
  3. METICORTEN [Concomitant]
     Indication: LUNG DISORDER
     Dosage: 1 DF, QD
     Route: 048
     Dates: start: 20060101
  4. METHOTREXATE [Concomitant]
     Indication: LUNG DISORDER
     Dosage: 17.5 MG, QW
     Route: 048
     Dates: start: 20080201
  5. DUOVENT [Concomitant]
     Indication: LUNG DISORDER
     Dosage: 4 INHALATIONS PER DAY
     Dates: start: 20080201
  6. OMEPRAZOLE [Concomitant]
     Indication: ABDOMINAL DISCOMFORT
     Dosage: 1 DF, QD
     Route: 048
  7. BROMOPRIDE [Concomitant]
     Indication: REFLUX OESOPHAGITIS
     Dosage: 1 DF, QD
  8. OSCAL [Concomitant]
     Indication: BONE DISORDER
     Dosage: 1 DF, QD
     Route: 048
  9. AEROLIN [Concomitant]
     Indication: LUNG DISORDER
     Dosage: 4 INHALATIONS PER DAY
     Dates: start: 20060101, end: 20080201

REACTIONS (3)
  - COMA [None]
  - DYSPNOEA [None]
  - MECHANICAL VENTILATION [None]
